FAERS Safety Report 20589849 (Version 1)
Quarter: 2022Q1

REPORT INFORMATION
  Report Type: Spontaneous
  Country: DE (occurrence: DE)
  Receive Date: 20220314
  Receipt Date: 20220314
  Transmission Date: 20220423
  Serious: Yes (Other)
  Sender: FDA-Public Use
  Company Number: None

PATIENT
  Sex: Female

DRUGS (3)
  1. DOTAREM [Suspect]
     Active Substance: GADOTERATE MEGLUMINE
     Indication: Product used for unknown indication
     Route: 065
  2. GADODIAMIDE [Suspect]
     Active Substance: GADODIAMIDE
     Indication: Product used for unknown indication
     Route: 065
  3. OMNISCAN [Suspect]
     Active Substance: GADODIAMIDE
     Indication: Product used for unknown indication
     Route: 065

REACTIONS (7)
  - Syncope [Unknown]
  - Product residue present [Unknown]
  - Vertigo [Unknown]
  - Blood pressure abnormal [Unknown]
  - Immune system disorder [Unknown]
  - Cardiac discomfort [Unknown]
  - Headache [Unknown]
